FAERS Safety Report 24126998 (Version 1)
Quarter: 2024Q3

REPORT INFORMATION
  Report Type: Report from Study
  Country: TW (occurrence: TW)
  Receive Date: 20240723
  Receipt Date: 20240723
  Transmission Date: 20241016
  Serious: Yes (Other)
  Sender: RANBAXY
  Company Number: TW-SUN PHARMACEUTICAL INDUSTRIES LTD-2024R1-458157

PATIENT
  Age: 55 Year
  Sex: Female

DRUGS (2)
  1. HYDROXYCHLOROQUINE [Suspect]
     Active Substance: HYDROXYCHLOROQUINE
     Indication: Immunosuppression
     Dosage: UNK
     Route: 065
  2. RITUXIMAB [Suspect]
     Active Substance: RITUXIMAB
     Indication: Antiphospholipid syndrome
     Dosage: UNK (9000 MG ACCUMULATED DOSE) (9 CYCLES)
     Route: 065

REACTIONS (1)
  - Hepatitis B reactivation [Recovered/Resolved]
